FAERS Safety Report 8838649 (Version 2)
Quarter: 2012Q4

REPORT INFORMATION
  Report Type: 
  Country: DE (occurrence: DE)
  Receive Date: 20121012
  Receipt Date: 20121222
  Transmission Date: 20130627
  Serious: Yes (Other)
  Sender: FDA-Public Use
  Company Number: DE-B.I. PHARMACEUTICALS,INC./RIDGEFIELD-2012-DE-02416DE

PATIENT
  Age: 51 Year
  Sex: Female
  Weight: 60 kg

DRUGS (3)
  1. SIFROL [Suspect]
     Indication: PARKINSON^S DISEASE
     Dosage: 3.1 mg
     Route: 048
     Dates: start: 201201
  2. AMANTADIN [Concomitant]
     Indication: PARKINSON^S DISEASE
     Dosage: 100 mg
     Route: 048
     Dates: start: 2009
  3. DELIX [Concomitant]
     Indication: HYPERTONIA
     Dosage: 100 mg
     Route: 048
     Dates: start: 201209

REACTIONS (1)
  - Catecholamines urine increased [Unknown]
